FAERS Safety Report 12328682 (Version 1)
Quarter: 2016Q2

REPORT INFORMATION
  Report Type: Spontaneous
  Country: US (occurrence: US)
  Receive Date: 20160503
  Receipt Date: 20160503
  Transmission Date: 20160815
  Serious: No
  Sender: FDA-Public Use
  Company Number: US-BEH-2015050121

PATIENT
  Sex: Female
  Weight: 95.3 kg

DRUGS (42)
  1. HIZENTRA [Suspect]
     Active Substance: HUMAN IMMUNOGLOBULIN G
     Indication: ASTHMA
     Route: 058
  2. PRILOSEC [Concomitant]
     Active Substance: OMEPRAZOLE MAGNESIUM
  3. SYNTHROID [Concomitant]
     Active Substance: LEVOTHYROXINE SODIUM
  4. HYDROXYZINE [Concomitant]
     Active Substance: HYDROXYZINE\HYDROXYZINE HYDROCHLORIDE
  5. LANTUS [Concomitant]
     Active Substance: INSULIN GLARGINE
  6. SINGULAIR [Concomitant]
     Active Substance: MONTELUKAST SODIUM
  7. FERROUS SULFATE. [Concomitant]
     Active Substance: FERROUS SULFATE
  8. SULFACETAMIDE. [Concomitant]
     Active Substance: SULFACETAMIDE
  9. EPIPEN [Concomitant]
     Active Substance: EPINEPHRINE
  10. PREVACID [Concomitant]
     Active Substance: LANSOPRAZOLE
  11. FIORICET [Concomitant]
     Active Substance: ACETAMINOPHEN\BUTALBITAL\CAFFEINE
  12. CLARITIN [Concomitant]
     Active Substance: LORATADINE
  13. ACETAMINOPHEN. [Concomitant]
     Active Substance: ACETAMINOPHEN
  14. LMX [Concomitant]
     Active Substance: LIDOCAINE
  15. ASTELIN [Concomitant]
     Active Substance: AZELASTINE HYDROCHLORIDE
  16. SPIRONOLACTONE. [Concomitant]
     Active Substance: SPIRONOLACTONE
  17. LASIX [Concomitant]
     Active Substance: FUROSEMIDE
  18. HIZENTRA [Suspect]
     Active Substance: HUMAN IMMUNOGLOBULIN G
     Indication: TYPE 2 DIABETES MELLITUS
     Route: 058
  19. FLOVENT [Concomitant]
     Active Substance: FLUTICASONE PROPIONATE
  20. CARAFATE [Concomitant]
     Active Substance: SUCRALFATE
  21. XANAX [Concomitant]
     Active Substance: ALPRAZOLAM
  22. GLIMEPIRIDE. [Concomitant]
     Active Substance: GLIMEPIRIDE
  23. METHADONE [Concomitant]
     Active Substance: METHADONE HYDROCHLORIDE
  24. TOPAMAX [Concomitant]
     Active Substance: TOPIRAMATE
  25. TIZANIDINE. [Concomitant]
     Active Substance: TIZANIDINE
  26. REMERON [Concomitant]
     Active Substance: MIRTAZAPINE
  27. HIZENTRA [Suspect]
     Active Substance: HUMAN IMMUNOGLOBULIN G
     Indication: ESSENTIAL HYPERTENSION
     Route: 058
  28. DIFLUCAN [Concomitant]
     Active Substance: FLUCONAZOLE
  29. OPANA ER [Concomitant]
     Active Substance: OXYMORPHONE HYDROCHLORIDE
  30. ADVAIR HFA [Concomitant]
     Active Substance: FLUTICASONE PROPIONATE\SALMETEROL XINAFOATE
  31. PEPCID [Concomitant]
     Active Substance: FAMOTIDINE
  32. CYMBALTA [Concomitant]
     Active Substance: DULOXETINE HYDROCHLORIDE
  33. KLONOPIN [Concomitant]
     Active Substance: CLONAZEPAM
  34. DIPHENHYDRAMINE. [Concomitant]
     Active Substance: DIPHENHYDRAMINE
  35. OXYGEN. [Concomitant]
     Active Substance: OXYGEN
  36. ZYRTEC [Concomitant]
     Active Substance: CETIRIZINE HYDROCHLORIDE
  37. OXYCODONE [Concomitant]
     Active Substance: OXYCODONE
  38. POTASSIUM CL [Concomitant]
     Active Substance: POTASSIUM CHLORIDE
  39. DOXYCYCLINE. [Concomitant]
     Active Substance: DOXYCYCLINE
  40. HIZENTRA [Suspect]
     Active Substance: HUMAN IMMUNOGLOBULIN G
     Indication: TYPE 2 DIABETES MELLITUS
     Route: 058
  41. NYSTATIN. [Concomitant]
     Active Substance: NYSTATIN
  42. ATACAND [Concomitant]
     Active Substance: CANDESARTAN CILEXETIL

REACTIONS (3)
  - Administration site pain [Unknown]
  - Administration site pruritus [Unknown]
  - Skin infection [Unknown]
